FAERS Safety Report 5930892-6 (Version None)
Quarter: 2008Q4

REPORT INFORMATION
  Report Type: 
  Country: None (occurrence: None)
  Receive Date: 20081022
  Receipt Date: 20081009
  Transmission Date: 20090506
  Serious: Yes (Death)
  Sender: FDA-Public Use
  Company Number: URSO-2008-067 FUP#1

PATIENT
  Age: 77 Year
  Sex: Male

DRUGS (7)
  1. URSO 250 [Suspect]
     Indication: BILIARY CIRRHOSIS PRIMARY
     Dosage: 600 MG ORAL, 900 MG
     Route: 048
     Dates: start: 20030307, end: 20030319
  2. URSO 250 [Suspect]
     Indication: BILIARY CIRRHOSIS PRIMARY
     Dosage: 600 MG ORAL, 900 MG
     Route: 048
     Dates: start: 20030320, end: 20061212
  3. BEZATOL SR (BEZAFIBRATE) [Concomitant]
  4. VIT K CAP [Concomitant]
  5. CHOLEBINE TABLETS(COLESTILAN) [Concomitant]
  6. JUVELA NICOTINATE(TOCOPHEROL NICOTINATE) [Concomitant]
  7. ALFAROL(ALFACALCIDOL) [Concomitant]

REACTIONS (2)
  - DISEASE PROGRESSION [None]
  - PNEUMONIA [None]
